FAERS Safety Report 11247230 (Version 2)
Quarter: 2015Q3

REPORT INFORMATION
  Report Type: Spontaneous
  Country: IT (occurrence: IT)
  Receive Date: 20150708
  Receipt Date: 20150714
  Transmission Date: 20151125
  Serious: Yes (Hospitalization)
  Sender: FDA-Public Use
  Company Number: IT-PFIZER INC-2015223546

PATIENT
  Age: 40 Year
  Sex: Male

DRUGS (5)
  1. RISPERDAL [Suspect]
     Active Substance: RISPERIDONE
     Dosage: 40 MG, SINGLE
     Route: 048
     Dates: start: 20150701, end: 20150701
  2. NOZINAN [Suspect]
     Active Substance: LEVOMEPROMAZINE
     Dosage: 375 MG, SINGLE
     Route: 048
     Dates: start: 20150701, end: 20150701
  3. ZOLOFT [Suspect]
     Active Substance: SERTRALINE HYDROCHLORIDE
     Dosage: 1000 MG, SINGLE
     Route: 048
     Dates: start: 20150701, end: 20150701
  4. TRITTICO [Suspect]
     Active Substance: TRAZODONE HYDROCHLORIDE
     Dosage: 1000 MG, SINGLE
     Route: 048
     Dates: start: 20150701, end: 20150701
  5. RIVOTRIL [Suspect]
     Active Substance: CLONAZEPAM
     Dosage: 40 MG, SINGLE
     Route: 048
     Dates: start: 20150701, end: 20150701

REACTIONS (2)
  - Intentional overdose [Recovering/Resolving]
  - Sopor [Recovering/Resolving]

NARRATIVE: CASE EVENT DATE: 20150701
